FAERS Safety Report 25599012 (Version 1)
Quarter: 2025Q3

REPORT INFORMATION
  Report Type: Spontaneous
  Country: US (occurrence: US)
  Receive Date: 20250724
  Receipt Date: 20250724
  Transmission Date: 20251021
  Serious: No
  Sender: ELI LILLY AND COMPANY
  Company Number: US-ELI_LILLY_AND_COMPANY-US202507010401

PATIENT
  Age: 57 Year
  Sex: Female

DRUGS (5)
  1. ZEPBOUND [Interacting]
     Active Substance: TIRZEPATIDE
     Indication: Product used for unknown indication
     Route: 058
     Dates: start: 20250604
  2. METFORMIN [Interacting]
     Active Substance: METFORMIN HYDROCHLORIDE
     Indication: Product used for unknown indication
     Route: 065
  3. METFORMIN [Interacting]
     Active Substance: METFORMIN HYDROCHLORIDE
     Route: 065
  4. ELIQUIS [Interacting]
     Active Substance: APIXABAN
     Indication: Blood disorder
     Route: 065
  5. LISINOPRIL [Interacting]
     Active Substance: LISINOPRIL
     Indication: Blood pressure measurement
     Route: 065

REACTIONS (6)
  - Feeling jittery [Unknown]
  - Weight fluctuation [Unknown]
  - Drug interaction [Unknown]
  - Blood sodium decreased [Unknown]
  - Blood glucose decreased [Unknown]
  - Impaired gastric emptying [Unknown]

NARRATIVE: CASE EVENT DATE: 20250604
